FAERS Safety Report 10461251 (Version 1)
Quarter: 2014Q3

REPORT INFORMATION
  Report Type: Spontaneous
  Country: JP (occurrence: None)
  Receive Date: 20140916
  Receipt Date: 20140916
  Transmission Date: 20150326
  Serious: No
  Sender: FDA-Public Use
  Company Number: B1031510A

PATIENT
  Age: 20 Year
  Sex: Female

DRUGS (5)
  1. PAROXETINE HYDROCHLORIDE TABLET-CONTROLLED RELEASE (PAROXETINE HYDROCHLORIDE) [Suspect]
     Active Substance: PAROXETINE HYDROCHLORIDE
     Indication: MENTAL DISORDER
     Route: 048
     Dates: start: 20140722, end: 20140722
  2. PAROXETINE HYDROCHLORIDE TABLET-CONTROLLED RELEASE (PAROXETINE HYDROCHLORIDE) [Suspect]
     Active Substance: PAROXETINE HYDROCHLORIDE
     Indication: MENTAL DISORDER
     Route: 048
     Dates: start: 20140620, end: 20140708
  3. ETIZOLAM [Concomitant]
     Active Substance: ETIZOLAM
  4. PAROXETINE HYDROCHLORIDE TABLET-CONTROLLED RELEASE (PAROXETINE HYDROCHLORIDE) [Suspect]
     Active Substance: PAROXETINE HYDROCHLORIDE
     Indication: MENTAL DISORDER
     Route: 048
     Dates: start: 20140723, end: 20140729
  5. BROTIZOLAM [Concomitant]
     Active Substance: BROTIZOLAM

REACTIONS (1)
  - Haemorrhage subcutaneous [None]
